FAERS Safety Report 10090494 (Version 2)
Quarter: 2014Q2

REPORT INFORMATION
  Report Type: Spontaneous
  Country: US (occurrence: None)
  Receive Date: 20140417
  Receipt Date: 20140623
  Transmission Date: 20141212
  Serious: Yes (Life-Threatening, Hospitalization)
  Sender: FDA-Public Use
  Company Number: UTC-045690

PATIENT
  Age: 67 Year
  Sex: Female
  Weight: 67.1 kg

DRUGS (3)
  1. REMODULIN [Suspect]
     Indication: PULMONARY ARTERIAL HYPERTENSION
     Dosage: (0.06 UG/KG, 1 IN 1 MIN)?
     Route: 041
     Dates: start: 20101026
  2. TRACLEER (BOSENTAN) [Concomitant]
  3. SILDENAFIL (SILDENAFIL) [Concomitant]

REACTIONS (4)
  - Device connection issue [None]
  - Hypoxia [None]
  - Pulmonary arterial hypertension [None]
  - Injection site haemorrhage [None]
